FAERS Safety Report 6305269-4 (Version None)
Quarter: 2009Q3

REPORT INFORMATION
  Report Type: 
  Country: None (occurrence: None)
  Receive Date: 20090811
  Receipt Date: 20090804
  Transmission Date: 20100115
  Serious: No
  Sender: FDA-Public Use
  Company Number: PHHY2009CA31650

PATIENT
  Sex: Female

DRUGS (2)
  1. ALISKIREN ALI+ [Suspect]
     Indication: HYPERTENSION
     Dosage: 150 MG PER DAY
     Route: 048
     Dates: start: 20090420
  2. ALISKIREN ALI+ [Suspect]
     Dosage: UNK
     Dates: end: 20090529

REACTIONS (2)
  - BLOOD PRESSURE INCREASED [None]
  - URINARY RETENTION [None]
